FAERS Safety Report 5702697-2 (Version None)
Quarter: 2008Q2

REPORT INFORMATION
  Report Type: 
  Country: None (occurrence: None)
  Receive Date: 20080411
  Receipt Date: 20080331
  Transmission Date: 20081010
  Serious: Yes (Hospitalization, Congenital Anomaly)
  Sender: FDA-Public Use
  Company Number: A0685056A

PATIENT
  Sex: Male

DRUGS (4)
  1. PAXIL CR [Suspect]
     Indication: BIPOLAR DISORDER
     Dosage: 37.5MG TWICE PER DAY
  2. DIGOXIN [Concomitant]
  3. VITAMIN TAB [Concomitant]
  4. IRON SUPPLEMENT [Concomitant]

REACTIONS (8)
  - ATRIAL SEPTAL DEFECT [None]
  - CAESAREAN SECTION [None]
  - DRUG EXPOSURE DURING PREGNANCY [None]
  - FOETAL HEART RATE ABNORMAL [None]
  - HEART DISEASE CONGENITAL [None]
  - NEONATAL RESPIRATORY DISTRESS SYNDROME [None]
  - TRICUSPID VALVE INCOMPETENCE [None]
  - VENTRICULAR SEPTAL DEFECT [None]
